FAERS Safety Report 7968912-X (Version None)
Quarter: 2011Q4

REPORT INFORMATION
  Report Type: 
  Country: None (occurrence: None)
  Receive Date: 20111208
  Receipt Date: 20111124
  Transmission Date: 20120403
  Serious: Yes (Hospitalization)
  Sender: FDA-Public Use
  Company Number: 1000024555

PATIENT
  Age: 90 Year
  Sex: Male
  Weight: 56 kg

DRUGS (3)
  1. PULMICORT TURBUHALER (BUDESONIDE)(200 MICROGRAM, POWDER)(BUDESONIDE) [Concomitant]
  2. ESCITALOPRAM OXALATE [Suspect]
     Indication: DEPRESSION
     Dosage: (10 MILLIGRAM, TABLETS) 5 MG (5 MG, 1 IN 1 D),ORAL
     Route: 048
     Dates: start: 20110211, end: 20110627
  3. ATROVENT (IPRATROPIUM BROMIDE)(20 MICROGRAM, TABLETS) [Concomitant]

REACTIONS (3)
  - ASTHENIA [None]
  - NEUTROPENIA [None]
  - DIZZINESS [None]
